FAERS Safety Report 9006028 (Version 1)
Quarter: 2013Q1

REPORT INFORMATION
  Report Type: Spontaneous
  Country: GB (occurrence: GB)
  Receive Date: 20130109
  Receipt Date: 20130109
  Transmission Date: 20140127
  Serious: Yes (Hospitalization)
  Sender: FDA-Public Use
  Company Number: PHHY2013GB001753

PATIENT
  Age: 53 Year
  Sex: Female

DRUGS (1)
  1. CETIRIZINE [Suspect]
     Indication: URTICARIA
     Dosage: 10 MG, TID
     Route: 048
     Dates: start: 20121017, end: 20121019

REACTIONS (3)
  - Abdominal distension [Unknown]
  - Local swelling [Unknown]
  - Joint swelling [Not Recovered/Not Resolved]
